FAERS Safety Report 5958872-5 (Version None)
Quarter: 2008Q4

REPORT INFORMATION
  Report Type: 
  Country: None (occurrence: None)
  Receive Date: 20081117
  Receipt Date: 20081104
  Transmission Date: 20090506
  Serious: Yes (Death, Life-Threatening, Hospitalization, Disabling)
  Sender: FDA-Public Use
  Company Number: 000623

PATIENT
  Age: 50 Year
  Sex: Male

DRUGS (9)
  1. BUSULFEX [Suspect]
     Indication: STEM CELL TRANSPLANT
     Dosage: 8.2 ML, TID INTRAVENOUS; 8.2 ML, QID; INTRAVENOUS; 8.2 ML, QD; INTRAVENOUS
     Route: 042
     Dates: start: 20061127, end: 20061127
  2. BUSULFEX [Suspect]
     Indication: STEM CELL TRANSPLANT
     Dosage: 8.2 ML, TID INTRAVENOUS; 8.2 ML, QID; INTRAVENOUS; 8.2 ML, QD; INTRAVENOUS
     Route: 042
     Dates: start: 20061128, end: 20061130
  3. BUSULFEX [Suspect]
     Indication: STEM CELL TRANSPLANT
     Dosage: 8.2 ML, TID INTRAVENOUS; 8.2 ML, QID; INTRAVENOUS; 8.2 ML, QD; INTRAVENOUS
     Route: 042
     Dates: start: 20061201, end: 20061201
  4. CYTARABINE [Concomitant]
  5. VALPROATE SODIUM [Concomitant]
  6. CYCLOPHOSPHAMIDE [Concomitant]
  7. NARTOGRASTIM (NARTOGRASTIM) [Concomitant]
  8. METHOTREXATE [Concomitant]
  9. TACROLIMUS [Concomitant]

REACTIONS (14)
  - ACUTE MYELOID LEUKAEMIA RECURRENT [None]
  - ANOREXIA [None]
  - CYTOMEGALOVIRUS VIRAEMIA [None]
  - DIARRHOEA [None]
  - HICCUPS [None]
  - MALAISE [None]
  - NAUSEA [None]
  - NEUTROPENIA [None]
  - OEDEMA [None]
  - PYREXIA [None]
  - RASH [None]
  - STAPHYLOCOCCAL SEPSIS [None]
  - STOMATITIS [None]
  - VOMITING [None]
